FAERS Safety Report 22083380 (Version 2)
Quarter: 2025Q3

REPORT INFORMATION
  Report Type: Spontaneous
  Country: EU (occurrence: EU)
  Receive Date: 20230310
  Receipt Date: 20250728
  Transmission Date: 20251021
  Serious: Yes (Other)
  Sender: AUROBINDO
  Company Number: EU-AUROBINDO-AUR-APL-2023-010132

PATIENT
  Age: 75 Year
  Sex: Male

DRUGS (4)
  1. AMIODARONE [Suspect]
     Active Substance: AMIODARONE
     Indication: Atrial fibrillation
     Route: 065
  2. UNSPECIFIED INGREDIENT [Concomitant]
     Active Substance: UNSPECIFIED INGREDIENT
     Indication: Product used for unknown indication
     Route: 065
     Dates: start: 20210517
  3. AZD-1222 [Concomitant]
     Active Substance: AZD-1222
     Indication: Acute myocardial infarction
     Route: 065
     Dates: start: 20210414
  4. WARFARIN [Concomitant]
     Active Substance: WARFARIN
     Indication: Sinus rhythm
     Route: 048
     Dates: start: 20210517

REACTIONS (1)
  - Drug ineffective [Unknown]
